FAERS Safety Report 7562047-6 (Version None)
Quarter: 2011Q2

REPORT INFORMATION
  Report Type: 
  Country: None (occurrence: None)
  Receive Date: 20110622
  Receipt Date: 20081211
  Transmission Date: 20111010
  Serious: Yes (Other)
  Sender: FDA-Public Use
  Company Number: PHHY2008DE37533

PATIENT
  Sex: Female
  Weight: 80 kg

DRUGS (5)
  1. DOCITON [Concomitant]
  2. ZYPREXA [Concomitant]
     Dosage: 5 MG, UNK
  3. LORAZEPAM [Concomitant]
     Dosage: 3.5 MG, UNK
  4. SANDOSTATIN LAR [Suspect]
     Indication: ACROMEGALY
     Dosage: 10 MG, UNK
     Route: 030
     Dates: start: 20030101
  5. FLUOXETINE HCL [Concomitant]
     Dosage: 30 MG, UNK

REACTIONS (9)
  - BILIARY COLIC [None]
  - MUSCULAR WEAKNESS [None]
  - PAIN IN EXTREMITY [None]
  - PERIPHERAL COLDNESS [None]
  - FREQUENT BOWEL MOVEMENTS [None]
  - ARTHRALGIA [None]
  - BACK PAIN [None]
  - CHONDROPATHY [None]
  - MYALGIA [None]
